FAERS Safety Report 17691015 (Version 1)
Quarter: 2020Q2

REPORT INFORMATION
  Report Type: Spontaneous
  Country: US (occurrence: US)
  Receive Date: 20200422
  Receipt Date: 20200422
  Transmission Date: 20200714
  Serious: Yes (Hospitalization)
  Sender: FDA-Public Use
  Company Number: US-ROCHE-2585769

PATIENT
  Age: 38 Year
  Sex: Female

DRUGS (4)
  1. LO LOESTRIN FE [Concomitant]
     Active Substance: ETHINYL ESTRADIOL\NORETHINDRONE ACETATE
  2. CARISOPRODOL. [Concomitant]
     Active Substance: CARISOPRODOL
  3. OCREVUS [Suspect]
     Active Substance: OCRELIZUMAB
     Indication: MULTIPLE SCLEROSIS
     Dosage: THEN 600 MG EVERY 6 MONTHS
     Route: 042
     Dates: start: 20190322
  4. KETOROLAC [Concomitant]
     Active Substance: KETOROLAC TROMETHAMINE

REACTIONS (3)
  - Onychoclasis [Unknown]
  - Trichorrhexis [Unknown]
  - Amylase increased [Unknown]

NARRATIVE: CASE EVENT DATE: 20200415
